FAERS Safety Report 18377171 (Version 2)
Quarter: 2020Q4

REPORT INFORMATION
  Report Type: Spontaneous
  Country: US (occurrence: US)
  Receive Date: 20201013
  Receipt Date: 20201207
  Transmission Date: 20210114
  Serious: No
  Sender: FDA-Public Use
  Company Number: US-KYOWAKIRIN-2020BKK015980

PATIENT

DRUGS (1)
  1. SANCUSO [Suspect]
     Active Substance: GRANISETRON
     Indication: PRODUCT USED FOR UNKNOWN INDICATION
     Dosage: 3.1MG
     Route: 061
     Dates: start: 20200924, end: 2020

REACTIONS (7)
  - Rash papular [Unknown]
  - Application site burn [Unknown]
  - Inappropriate schedule of product administration [Not Recovered/Not Resolved]
  - Urticaria [Unknown]
  - Application site pruritus [Unknown]
  - Rash pruritic [Unknown]
  - Application site papules [Unknown]

NARRATIVE: CASE EVENT DATE: 20200924
